FAERS Safety Report 23587248 (Version 4)
Quarter: 2024Q3

REPORT INFORMATION
  Report Type: Spontaneous
  Country: US (occurrence: None)
  Receive Date: 20240301
  Receipt Date: 20240708
  Transmission Date: 20241017
  Serious: Yes (Life-Threatening, Other)
  Sender: ASTRAZENECA
  Company Number: 2024A047975

PATIENT
  Age: 23308 Day
  Sex: Female

DRUGS (2)
  1. BYDUREON BCISE [Suspect]
     Active Substance: EXENATIDE
     Dosage: 2.0MG UNKNOWN
  2. BRILINTA [Suspect]
     Active Substance: TICAGRELOR

REACTIONS (14)
  - Chronic kidney disease [Unknown]
  - Clinical death [Unknown]
  - Myocardial infarction [Unknown]
  - Gallbladder disorder [Unknown]
  - Cardiac disorder [Unknown]
  - Liver disorder [Unknown]
  - Glycosylated haemoglobin increased [Unknown]
  - Thyroid disorder [Unknown]
  - Weight increased [Unknown]
  - Weight decreased [Unknown]
  - Drug dose omission by device [Unknown]
  - Incorrect dose administered by device [Unknown]
  - Device malfunction [Unknown]
  - Device issue [Unknown]

NARRATIVE: CASE EVENT DATE: 20240224
